FAERS Safety Report 5093928-3 (Version None)
Quarter: 2006Q3

REPORT INFORMATION
  Report Type: 
  Country: None (occurrence: None)
  Receive Date: 20060831
  Receipt Date: 20050718
  Transmission Date: 20061208
  Serious: Yes (Hospitalization, Other)
  Sender: FDA-Public Use
  Company Number: PHHO2005US11368

PATIENT
  Age: 69 Year
  Sex: Male

DRUGS (22)
  1. LANTUS [Concomitant]
  2. ZOLEDRONIC ACID VS PLACEBO [Suspect]
     Indication: METASTASES TO BONE
     Route: 042
     Dates: start: 20050517, end: 20050629
  3. TAXOTERE [Concomitant]
     Indication: NON-SMALL CELL LUNG CANCER
     Dates: start: 20050517, end: 20050629
  4. CARBOPLATIN [Concomitant]
     Indication: NON-SMALL CELL LUNG CANCER
     Dates: start: 20050517, end: 20050629
  5. VITAMIN D [Concomitant]
     Indication: NON-SMALL CELL LUNG CANCER
  6. CALCIUM GLUCONATE [Concomitant]
     Indication: NON-SMALL CELL LUNG CANCER
     Dosage: UNK, UNK
  7. PROCARDIA XL [Concomitant]
     Dosage: 90 MG, QD
     Route: 048
  8. ENALAPRIL [Suspect]
     Dosage: 30 MG, BID
     Route: 048
  9. CARDURA [Concomitant]
     Dosage: 2 MG, QD
     Route: 048
  10. LIPITOR [Concomitant]
     Dosage: 10 MG, QHS
     Route: 048
  11. FLOVENT [Concomitant]
     Dosage: 110 MG, BID
  12. GLYBURIDE [Concomitant]
     Dosage: 10 MG, BID
     Route: 048
  13. ACTOS [Concomitant]
     Dosage: 15 MG, QD
     Route: 048
  14. PROTONIX [Concomitant]
     Dosage: 40 MG, QD
     Route: 048
  15. LOPRESSOR [Suspect]
     Dosage: 50 MG, BID
     Route: 048
  16. COMPAZINE [Concomitant]
     Dosage: 10 MG, Q6H
     Route: 048
  17. ASPIRIN [Concomitant]
  18. PLAVIX [Concomitant]
  19. TYLENOL [Concomitant]
     Dosage: UNK, PRN
  20. DULCOLAX [Concomitant]
     Dosage: UNK, PRN
  21. TEGRETOL [Concomitant]
  22. NORVASC [Suspect]
     Dosage: 10 MG, QD
     Route: 048

REACTIONS (7)
  - ANAEMIA [None]
  - BLOOD GLUCOSE DECREASED [None]
  - DIZZINESS POSTURAL [None]
  - ELECTROCARDIOGRAM T WAVE ABNORMAL [None]
  - FAILURE TO THRIVE [None]
  - FALL [None]
  - ORAL INTAKE REDUCED [None]
